FAERS Safety Report 14686891 (Version 1)
Quarter: 2018Q1

REPORT INFORMATION
  Report Type: Spontaneous
  Country: AR (occurrence: AR)
  Receive Date: 20180327
  Receipt Date: 20180327
  Transmission Date: 20180509
  Serious: Yes (Hospitalization, Other)
  Sender: FDA-Public Use
  Company Number: AR-AMGEN-ARGSP2018041281

PATIENT
  Age: 67 Year
  Sex: Female

DRUGS (1)
  1. ENBREL [Suspect]
     Active Substance: ETANERCEPT
     Indication: RHEUMATOID ARTHRITIS
     Dosage: 50 MG, WEEKLY
     Route: 065
     Dates: start: 20100101

REACTIONS (6)
  - Aortic elongation [Unknown]
  - Blood pressure increased [Unknown]
  - Cerebral infarction [Unknown]
  - Abortion spontaneous [Unknown]
  - Pneumonia [Unknown]
  - Catarrh [Unknown]

NARRATIVE: CASE EVENT DATE: 2018
